FAERS Safety Report 18192573 (Version 1)
Quarter: 2020Q3

REPORT INFORMATION
  Report Type: Spontaneous
  Country: IT (occurrence: IT)
  Receive Date: 20200825
  Receipt Date: 20200825
  Transmission Date: 20201103
  Serious: Yes (Hospitalization)
  Sender: FDA-Public Use
  Company Number: IT-ASTRAZENECA-2020SF06239

PATIENT
  Age: 21 Year
  Sex: Female

DRUGS (2)
  1. SEROQUEL [Suspect]
     Active Substance: QUETIAPINE FUMARATE
     Dosage: 1.0DF ONCE/SINGLE ADMINISTRATION
     Route: 030
     Dates: start: 20200810, end: 20200810
  2. ENTUMIN [Suspect]
     Active Substance: CLOTHIAPINE
     Dosage: 1.0DF ONCE/SINGLE ADMINISTRATION
     Route: 042
     Dates: start: 20200810, end: 20200810

REACTIONS (3)
  - Drug abuse [Recovering/Resolving]
  - Phlebitis [Recovering/Resolving]
  - Abscess [Recovering/Resolving]

NARRATIVE: CASE EVENT DATE: 20200810
